FAERS Safety Report 11604727 (Version 1)
Quarter: 2015Q4

REPORT INFORMATION
  Report Type: Spontaneous
  Country: US (occurrence: None)
  Receive Date: 20151006
  Receipt Date: 20151006
  Transmission Date: 20160304
  Serious: No
  Sender: FDA-Public Use
  Company Number: None

PATIENT

DRUGS (1)
  1. SINGULAIR [Suspect]
     Active Substance: MONTELUKAST SODIUM
     Indication: ASTHMA
     Route: 048
     Dates: start: 20150612, end: 20150916

REACTIONS (6)
  - Hyperacusis [None]
  - Anxiety [None]
  - Aggression [None]
  - Abnormal behaviour [None]
  - Anger [None]
  - Fear [None]

NARRATIVE: CASE EVENT DATE: 20150710
